FAERS Safety Report 5282251-X (Version None)
Quarter: 2007Q1

REPORT INFORMATION
  Report Type: 
  Country: None (occurrence: None)
  Receive Date: 20070330
  Receipt Date: 20070320
  Transmission Date: 20070707
  Serious: Yes (Other)
  Sender: FDA-Public Use
  Company Number: GB-PFIZER INC-2007022556

PATIENT
  Age: 42 Year
  Sex: Male

DRUGS (4)
  1. METRONIDAZOLE CAPSULE [Suspect]
     Indication: HELICOBACTER INFECTION
  2. LANSOPRAZOLE [Concomitant]
     Indication: HELICOBACTER INFECTION
  3. AMOXICILLIN [Concomitant]
     Indication: HELICOBACTER INFECTION
  4. CLARITHROMYCIN [Concomitant]
     Indication: HELICOBACTER INFECTION

REACTIONS (1)
  - MENINGITIS ASEPTIC [None]
